FAERS Safety Report 8157999-X (Version None)
Quarter: 2012Q1

REPORT INFORMATION
  Report Type: 
  Country: None (occurrence: None)
  Receive Date: 20120222
  Receipt Date: 20120214
  Transmission Date: 20120608
  Serious: Yes (Other)
  Sender: FDA-Public Use
  Company Number: PHHY2012AT012921

PATIENT
  Age: 79 Year
  Sex: Female

DRUGS (2)
  1. ZOMETA [Suspect]
     Indication: PLASMACYTOMA
     Dosage: UNK UKN, UNK
     Route: 042
     Dates: start: 20061001
  2. ZOMETA [Suspect]
     Dates: end: 20080201

REACTIONS (10)
  - EXPOSED BONE IN JAW [None]
  - PAIN IN JAW [None]
  - GINGIVAL INFECTION [None]
  - PAIN [None]
  - BONE SWELLING [None]
  - PRIMARY SEQUESTRUM [None]
  - IMPAIRED HEALING [None]
  - BONE LESION [None]
  - OSTEONECROSIS OF JAW [None]
  - ACTINOMYCES TEST POSITIVE [None]
